FAERS Safety Report 10035965 (Version 2)
Quarter: 2014Q2

REPORT INFORMATION
  Report Type: Spontaneous
  Country: BR (occurrence: BR)
  Receive Date: 20140325
  Receipt Date: 20140418
  Transmission Date: 20141212
  Serious: Yes (Other)
  Sender: FDA-Public Use
  Company Number: BR-PFIZER INC-2014079223

PATIENT
  Sex: Male

DRUGS (2)
  1. VIAGRA [Suspect]
     Dosage: STRENGTH 25MG
  2. VIAGRA [Suspect]
     Dosage: STRENGTH 50MG
     Dates: start: 201403

REACTIONS (2)
  - Prostatic disorder [Unknown]
  - Drug ineffective [Unknown]
